FAERS Safety Report 18307801 (Version 2)
Quarter: 2020Q3

REPORT INFORMATION
  Report Type: Report from Study
  Country: GB (occurrence: GB)
  Receive Date: 20200924
  Receipt Date: 20200925
  Transmission Date: 20201103
  Serious: Yes (Hospitalization)
  Sender: FDA-Public Use
  Company Number: GB-PFIZER INC-2020357853

PATIENT
  Weight: 47.6 kg

DRUGS (4)
  1. CYTARABINE. [Suspect]
     Active Substance: CYTARABINE
     Indication: ACUTE MYELOID LEUKAEMIA
     Dosage: 2800 MG, 4X/DAY
     Route: 042
     Dates: start: 20161129, end: 20161203
  2. FLUDARABINE [Suspect]
     Active Substance: FLUDARABINE PHOSPHATE
     Indication: ACUTE MYELOID LEUKAEMIA
     Dosage: 42.5 MG, 4X/DAY
     Dates: start: 20161129, end: 20161203
  3. IDARUBICIN HCL [Suspect]
     Active Substance: IDARUBICIN HYDROCHLORIDE
     Indication: ACUTE MYELOID LEUKAEMIA
     Dosage: 11 MG, 4X/DAY
     Route: 042
     Dates: start: 20161201, end: 20161203
  4. NORETHISTERONE [Concomitant]
     Active Substance: NORETHINDRONE
     Indication: PROPHYLAXIS
     Dosage: 5 MG, 3X/DAY
     Dates: start: 20161019

REACTIONS (2)
  - Febrile neutropenia [Recovered/Resolved]
  - Periorbital cellulitis [Recovered/Resolved]

NARRATIVE: CASE EVENT DATE: 20161216
